FAERS Safety Report 4896813-2 (Version None)
Quarter: 2005Q4

REPORT INFORMATION
  Report Type: 
  Country: None (occurrence: None)
  Receive Date: 20051223
  Receipt Date: 20050829
  Transmission Date: 20060501
  Serious: Yes (Death)
  Sender: FDA-Public Use
  Company Number: 217128

PATIENT
  Age: 47 Year
  Sex: Female
  Weight: 96.1 kg

DRUGS (13)
  1. AVASTIN [Suspect]
     Indication: COLORECTAL CANCER METASTATIC
     Dosage: 5 MG/KG, Q2W, INTRAVENOUS
     Route: 042
     Dates: start: 20050412
  2. FLUOROURACIL [Suspect]
     Indication: COLORECTAL CANCER METASTATIC
  3. LEUCOVORIN CALCIUM [Suspect]
     Indication: COLORECTAL CANCER METASTATIC
  4. OXALIPLATIN (OXALIPLATIN) [Suspect]
     Indication: COLORECTAL CANCER METASTATIC
  5. ATENOL (ATENOLOL) [Concomitant]
  6. NEURONTIN [Concomitant]
  7. HCT (HYDROCHLOROTHIAZIDE) [Concomitant]
  8. VICODIN (HYDROCODONE BITARTRATE, ACETAMINOPHEN) [Concomitant]
  9. ZOFRAN [Concomitant]
  10. VANCOMYCIN HYDROCHLORIDE [Concomitant]
  11. COMPAZINE [Concomitant]
  12. EMEND [Concomitant]
  13. MOTRIN [Concomitant]

REACTIONS (1)
  - RECTAL HAEMORRHAGE [None]
